FAERS Safety Report 4721432-8 (Version None)
Quarter: 2005Q3

REPORT INFORMATION
  Report Type: 
  Country: None (occurrence: None)
  Receive Date: 20050721
  Receipt Date: 20040831
  Transmission Date: 20060218
  Serious: Yes (Hospitalization)
  Sender: FDA-Public Use
  Company Number: US-BRISTOL-MYERS SQUIBB COMPANY-12688446

PATIENT
  Sex: Female

DRUGS (10)
  1. COUMADIN [Suspect]
     Dosage: VARYING DOSAGES; CURRENTLY ON 7.5MG
  2. PLAVIX [Concomitant]
  3. ZOCOR [Concomitant]
  4. NIFEDIPINE [Concomitant]
  5. LOPRESSOR [Concomitant]
  6. NITROGLYCERIN [Concomitant]
  7. PEPCID [Concomitant]
  8. LORAZEPAM [Concomitant]
  9. ASPIRIN [Concomitant]
  10. TRAZOLAN [Concomitant]

REACTIONS (1)
  - INTERNATIONAL NORMALISED RATIO FLUCTUATION [None]
